FAERS Safety Report 11181222 (Version 1)
Quarter: 2015Q2

REPORT INFORMATION
  Report Type: Spontaneous
  Country: US (occurrence: None)
  Receive Date: 20150610
  Receipt Date: 20150610
  Transmission Date: 20150821
  Serious: No
  Sender: FDA-Public Use
  Company Number: None

PATIENT
  Age: 46 Year
  Sex: Female
  Weight: 63.5 kg

DRUGS (3)
  1. MELATONIN [Concomitant]
     Active Substance: MELATONIN
  2. TYLENOL [Concomitant]
     Active Substance: ACETAMINOPHEN
  3. XARELTO [Suspect]
     Active Substance: RIVAROXABAN
     Indication: PULMONARY EMBOLISM
     Route: 048
     Dates: start: 20141010, end: 20150410

REACTIONS (9)
  - Groin pain [None]
  - Back pain [None]
  - Limb discomfort [None]
  - Paraesthesia [None]
  - Angiopathy [None]
  - Muscle spasms [None]
  - Pain in extremity [None]
  - Hypoaesthesia [None]
  - Feeling hot [None]

NARRATIVE: CASE EVENT DATE: 20141010
